FAERS Safety Report 6078246-9 (Version None)
Quarter: 2009Q1

REPORT INFORMATION
  Report Type: 
  Country: None (occurrence: None)
  Receive Date: 20090213
  Receipt Date: 20090206
  Transmission Date: 20090719
  Serious: Yes (Other)
  Sender: FDA-Public Use
  Company Number: US-JNJCH-2009003725

PATIENT
  Age: 54 Year
  Sex: Female
  Weight: 52.2 kg

DRUGS (2)
  1. LUBRIDERM DAILY MOISTURE FRAGRANCE FREE [Suspect]
     Indication: DRY SKIN
     Dosage: TEXT:A LITTLE BIT ON PALM OF HAND TWICE
     Route: 061
  2. ATIVAN [Concomitant]
     Indication: NERVOUS SYSTEM DISORDER
     Dosage: TEXT:1 MG 2 TWICE A DAY
     Route: 065

REACTIONS (4)
  - CONDITION AGGRAVATED [None]
  - DYSPNOEA [None]
  - PRODUCT QUALITY ISSUE [None]
  - SKIN IRRITATION [None]
